FAERS Safety Report 16033482 (Version 1)
Quarter: 2019Q1

REPORT INFORMATION
  Report Type: Spontaneous
  Country: US (occurrence: US)
  Receive Date: 20190305
  Receipt Date: 20190305
  Transmission Date: 20190418
  Serious: No
  Sender: FDA-Public Use
  Company Number: US-PRINSTON PHARMACEUTICAL INC.-2018PRN00858

PATIENT
  Age: 66 Year
  Sex: Male
  Weight: 90.7 kg

DRUGS (4)
  1. VITAMINS [Concomitant]
     Active Substance: VITAMINS
  2. SIMVASTATIN. [Concomitant]
     Active Substance: SIMVASTATIN
     Indication: BLOOD CHOLESTEROL INCREASED
  3. ASPIRIN. [Concomitant]
     Active Substance: ASPIRIN
  4. VALSARTAN AND HYDROCHLOROTHIAZIDE [Suspect]
     Active Substance: HYDROCHLOROTHIAZIDE\VALSARTAN
     Indication: HYPERTENSION
     Dosage: 1 TABLETS, 1X/DAY
     Route: 048
     Dates: start: 20180102, end: 20180626

REACTIONS (2)
  - Muscle spasms [Recovered/Resolved]
  - Heat illness [Recovered/Resolved]

NARRATIVE: CASE EVENT DATE: 201806
